FAERS Safety Report 18456663 (Version 1)
Quarter: 2020Q4

REPORT INFORMATION
  Report Type: Spontaneous
  Country: US (occurrence: US)
  Receive Date: 20201102
  Receipt Date: 20201102
  Transmission Date: 20210114
  Serious: Yes (Other)
  Sender: FDA-Public Use
  Company Number: None

PATIENT
  Age: 50 Year
  Sex: Female
  Weight: 128.7 kg

DRUGS (11)
  1. TYSABRI [Suspect]
     Active Substance: NATALIZUMAB
     Indication: MULTIPLE SCLEROSIS
     Dosage: ?          OTHER FREQUENCY:ONCE A MONTH;?
     Route: 041
     Dates: start: 20200213, end: 20200717
  2. SINGULAIR [Concomitant]
     Active Substance: MONTELUKAST SODIUM
  3. DULOXETINE. [Concomitant]
     Active Substance: DULOXETINE
  4. LOSARTAN POTASSIUM. [Concomitant]
     Active Substance: LOSARTAN POTASSIUM
  5. OXYCODONE [Concomitant]
     Active Substance: OXYCODONE
  6. TRAZODONE [Concomitant]
     Active Substance: TRAZODONE HYDROCHLORIDE
  7. ROPINIROLE. [Concomitant]
     Active Substance: ROPINIROLE
  8. MELOXICAM. [Concomitant]
     Active Substance: MELOXICAM
  9. NEURONTIN [Concomitant]
     Active Substance: GABAPENTIN
  10. THEOPHYLLINE ER 400MG [Concomitant]
  11. ESCITALOPRAM OXALATE 10MG [Concomitant]
     Active Substance: ESCITALOPRAM OXALATE

REACTIONS (1)
  - Adenocarcinoma of colon [None]

NARRATIVE: CASE EVENT DATE: 20200928
